FAERS Safety Report 5270162-5 (Version None)
Quarter: 2007Q1

REPORT INFORMATION
  Report Type: 
  Country: None (occurrence: None)
  Receive Date: 20070320
  Receipt Date: 20070312
  Transmission Date: 20070707
  Serious: Yes (Hospitalization)
  Sender: FDA-Public Use
  Company Number: US-ELI_LILLY_AND_COMPANY-US200703002382

PATIENT
  Age: 85 Year
  Sex: Female

DRUGS (3)
  1. FORTEO [Suspect]
     Indication: OSTEOPOROSIS
     Dates: start: 20061001
  2. CALCIUM CARBONATE [Concomitant]
  3. ERGOCALCIFEROL [Concomitant]

REACTIONS (1)
  - BACK DISORDER [None]
